FAERS Safety Report 8352533-3 (Version None)
Quarter: 2012Q2

REPORT INFORMATION
  Report Type: 
  Country: None (occurrence: None)
  Receive Date: 20120511
  Receipt Date: 20120509
  Transmission Date: 20120825
  Serious: Yes (Death, Other)
  Sender: FDA-Public Use
  Company Number: PHHY2012MX030251

PATIENT
  Sex: Male

DRUGS (5)
  1. COLCHICINE [Concomitant]
     Dosage: 1 DF, UNK
  2. IMURAN [Concomitant]
     Dosage: 1 DF, UNK
  3. DABEX XR [Concomitant]
     Dosage: 1 DF, UNK
     Dates: start: 20120317
  4. RASILEZ [Suspect]
     Indication: HYPERTENSION
     Dosage: 1 DF/D
     Dates: start: 20110317
  5. RASILEZ [Suspect]
     Indication: EMPHYSEMA

REACTIONS (2)
  - LUNG DISORDER [None]
  - DEATH [None]
